FAERS Safety Report 19680770 (Version 1)
Quarter: 2021Q3

REPORT INFORMATION
  Report Type: Report from Study
  Country: US (occurrence: US)
  Receive Date: 20210810
  Receipt Date: 20210810
  Transmission Date: 20211014
  Serious: Yes (Hospitalization)
  Sender: FDA-Public Use
  Company Number: US-EXELIXIS-CABO-21040113

PATIENT
  Age: 60 Year
  Sex: Male
  Weight: 84.49 kg

DRUGS (2)
  1. CABOMETYX [Suspect]
     Active Substance: CABOZANTINIB S-MALATE
     Indication: RENAL CANCER
     Dosage: 40 MG, QD
     Route: 048
     Dates: start: 20210415
  2. CABOMETYX [Suspect]
     Active Substance: CABOZANTINIB S-MALATE
     Dosage: 20 MG, QD
     Route: 048

REACTIONS (13)
  - Skin exfoliation [Unknown]
  - Blood pressure increased [Unknown]
  - Cerebral disorder [Unknown]
  - Urinary tract infection [Unknown]
  - Feeling abnormal [Unknown]
  - Dry mouth [Unknown]
  - Postoperative wound infection [Unknown]
  - Ageusia [Unknown]
  - Burning sensation [Unknown]
  - Adverse drug reaction [Unknown]
  - Tongue erythema [Unknown]
  - Blister [Unknown]
  - Asthenia [Unknown]

NARRATIVE: CASE EVENT DATE: 202104
